FAERS Safety Report 11317298 (Version 1)
Quarter: 2015Q3

REPORT INFORMATION
  Report Type: Spontaneous
  Country: US (occurrence: None)
  Receive Date: 20150727
  Receipt Date: 20150727
  Transmission Date: 20151125
  Serious: No
  Sender: FDA-Public Use
  Company Number: None

PATIENT
  Age: 45 Year
  Sex: Female

DRUGS (8)
  1. MULTIVITAMIN [Concomitant]
     Active Substance: VITAMINS
  2. MELOXICAM. [Suspect]
     Active Substance: MELOXICAM
     Indication: SYSTEMIC LUPUS ERYTHEMATOSUS
     Route: 048
  3. VITAMIN D [Concomitant]
     Active Substance: CHOLECALCIFEROL
  4. TYLENOL [Concomitant]
     Active Substance: ACETAMINOPHEN
  5. VITAMIN B12 [Concomitant]
     Active Substance: CYANOCOBALAMIN
  6. RITUXAN [Concomitant]
     Active Substance: RITUXIMAB
  7. PREDNISONE. [Concomitant]
     Active Substance: PREDNISONE
  8. COCONUT OIL [Concomitant]
     Active Substance: COCONUT OIL

REACTIONS (1)
  - Nightmare [None]

NARRATIVE: CASE EVENT DATE: 20150725
